FAERS Safety Report 5196385-1 (Version None)
Quarter: 2006Q4

REPORT INFORMATION
  Report Type: 
  Country: None (occurrence: None)
  Receive Date: 20061222
  Receipt Date: 20061211
  Transmission Date: 20070319
  Serious: Yes (Hospitalization)
  Sender: FDA-Public Use
  Company Number: MEDI-0005055

PATIENT
  Age: 15 Month

DRUGS (1)
  1. SYNAGIS [Suspect]
     Indication: ANTIVIRAL PROPHYLAXIS
     Dosage: 100MG, INTRASMUSCULAR
     Route: 030
     Dates: start: 20051012, end: 20060104

REACTIONS (2)
  - PULMONARY ARTERY STENOSIS [None]
  - VENTRICULAR SEPTAL DEFECT [None]
